FAERS Safety Report 7444585-X (Version None)
Quarter: 2011Q2

REPORT INFORMATION
  Report Type: 
  Country: None (occurrence: None)
  Receive Date: 20110429
  Receipt Date: 20110426
  Transmission Date: 20111010
  Serious: Yes (Other)
  Sender: FDA-Public Use
  Company Number: US-PFIZER INC-2008155342

PATIENT
  Sex: Female
  Weight: 81 kg

DRUGS (9)
  1. XANAX [Concomitant]
     Indication: ANXIETY
     Dosage: 0.5 MG, AS NEEDED
     Route: 048
  2. LYRICA [Concomitant]
     Indication: FIBROMYALGIA
     Dosage: 100 MG, 2X/DAY
     Route: 048
  3. CHANTIX [Suspect]
     Indication: SMOKING CESSATION THERAPY
     Dosage: 0.5 MG, 1X/DAY
     Route: 048
     Dates: start: 20081208, end: 20081210
  4. EFFEXOR XR [Concomitant]
     Indication: DEPRESSION
     Dosage: 225 MG PER DAY
  5. PRILOSEC [Concomitant]
     Dosage: 40 MG, 2X/DAY
  6. XANAX [Concomitant]
     Route: 048
  7. CHANTIX [Suspect]
     Dosage: UNK
  8. VITAMIN B-12 [Concomitant]
     Indication: FIBROMYALGIA
     Dosage: UNK
     Route: 030
  9. LYRICA [Concomitant]
     Route: 048

REACTIONS (3)
  - SKIN BURNING SENSATION [None]
  - SKIN DISORDER [None]
  - ERYTHEMA [None]
